FAERS Safety Report 9725548 (Version 2)
Quarter: 2013Q4

REPORT INFORMATION
  Report Type: Spontaneous
  Country: JP (occurrence: JP)
  Receive Date: 20131203
  Receipt Date: 20131209
  Transmission Date: 20140711
  Serious: Yes (Death)
  Sender: FDA-Public Use
  Company Number: PHHY2013JP139666

PATIENT
  Age: 87 Year
  Sex: Male

DRUGS (2)
  1. TASIGNA [Suspect]
     Indication: CHRONIC MYELOID LEUKAEMIA
     Dosage: 300 MG, DAILY
     Route: 048
     Dates: start: 20130410
  2. TS-1 [Concomitant]

REACTIONS (3)
  - Pneumonia [Fatal]
  - Pyrexia [Fatal]
  - Respiratory failure [Fatal]
